FAERS Safety Report 14395729 (Version 1)
Quarter: 2018Q1

REPORT INFORMATION
  Report Type: Spontaneous
  Country: US (occurrence: US)
  Receive Date: 20180116
  Receipt Date: 20180116
  Transmission Date: 20180509
  Serious: No
  Sender: FDA-Public Use
  Company Number: US-ALLERGAN-1713388US

PATIENT
  Sex: Female

DRUGS (1)
  1. BOTOX [Suspect]
     Active Substance: ONABOTULINUMTOXINA
     Indication: SKIN WRINKLING
     Dosage: UNK, SINGLE
     Route: 030

REACTIONS (3)
  - Muscular weakness [Recovering/Resolving]
  - Vision blurred [Recovering/Resolving]
  - Vitreous floaters [Not Recovered/Not Resolved]

NARRATIVE: CASE EVENT DATE: 2017
